FAERS Safety Report 7299229-7 (Version None)
Quarter: 2011Q1

REPORT INFORMATION
  Report Type: 
  Country: None (occurrence: None)
  Receive Date: 20110217
  Receipt Date: 20110211
  Transmission Date: 20110831
  Serious: Yes (Hospitalization)
  Sender: FDA-Public Use
  Company Number: IT-MERCK-0903ITA00007

PATIENT
  Age: 68 Year
  Sex: Female

DRUGS (4)
  1. PIOGLITAZONE HYDROCHLORIDE [Concomitant]
     Route: 048
     Dates: start: 20071101, end: 20081120
  2. HYDROCHLOROTHIAZIDE AND IRBESARTAN [Concomitant]
     Route: 048
     Dates: start: 20071101, end: 20071120
  3. JANUVIA [Suspect]
     Indication: TYPE 2 DIABETES MELLITUS
     Route: 048
     Dates: start: 20080506, end: 20081113
  4. LACIDIPINE [Concomitant]
     Route: 048
     Dates: start: 20080506, end: 20081120

REACTIONS (1)
  - BREAST CANCER [None]
